FAERS Safety Report 9961693 (Version 1)
Quarter: 2014Q1

REPORT INFORMATION
  Report Type: Report from Study
  Country: US (occurrence: US)
  Receive Date: 20140305
  Receipt Date: 20140305
  Transmission Date: 20141002
  Serious: Yes (Hospitalization)
  Sender: FDA-Public Use
  Company Number: US-ABBVIE-13P-163-1112835-00

PATIENT
  Age: 30 Year
  Sex: Female
  Weight: 74.91 kg

DRUGS (4)
  1. HUMIRA [Suspect]
     Indication: PRODUCT USED FOR UNKNOWN INDICATION
     Route: 058
     Dates: start: 201201, end: 201201
  2. HUMIRA [Suspect]
     Route: 058
     Dates: start: 201201, end: 201201
  3. HUMIRA [Suspect]
     Route: 058
     Dates: start: 201202, end: 201306
  4. FLEXERIL [Concomitant]
     Indication: TRISMUS

REACTIONS (4)
  - Genital abscess [Not Recovered/Not Resolved]
  - Arthropod bite [Recovered/Resolved]
  - Ingrown hair [Not Recovered/Not Resolved]
  - Wound infection staphylococcal [Not Recovered/Not Resolved]
